FAERS Safety Report 5213288-4 (Version None)
Quarter: 2007Q1

REPORT INFORMATION
  Report Type: 
  Country: None (occurrence: None)
  Receive Date: 20070118
  Receipt Date: 20070118
  Transmission Date: 20070707
  Serious: Yes (Death)
  Sender: FDA-Public Use
  Company Number: None

PATIENT
  Sex: Female
  Weight: 6.4 kg

DRUGS (7)
  1. CISPLATIN [Suspect]
     Indication: BRAIN NEOPLASM MALIGNANT
     Dosage: 24MG    DAY O     IV DRIP
     Route: 041
     Dates: start: 20070106
  2. VINCRISTINE [Suspect]
     Indication: BRAIN NEOPLASM MALIGNANT
     Dosage: 0.35MG  DAY O   IV BOLUS
     Route: 040
     Dates: start: 20070106
  3. CYCLOPHOSPHAMIDE [Concomitant]
  4. MESNA [Concomitant]
  5. ETOPOSIDE [Concomitant]
  6. METHOTREXATE [Concomitant]
  7. LEUCOVORIN CALCIUM [Concomitant]

REACTIONS (6)
  - CARDIOPULMONARY FAILURE [None]
  - HYPOTENSION [None]
  - RESPIRATORY DISTRESS [None]
  - RESPIRATORY RATE INCREASED [None]
  - RESPIRATORY SYNCYTIAL VIRUS INFECTION [None]
  - SEPSIS [None]
